FAERS Safety Report 9907088 (Version 2)
Quarter: 2014Q1

REPORT INFORMATION
  Report Type: Spontaneous
  Country: DE (occurrence: DE)
  Receive Date: 20140218
  Receipt Date: 20140313
  Transmission Date: 20141002
  Serious: Yes (Other)
  Sender: FDA-Public Use
  Company Number: DE-ELI_LILLY_AND_COMPANY-DE201402003091

PATIENT
  Sex: Male

DRUGS (8)
  1. EFIENT [Suspect]
     Indication: PRODUCT USED FOR UNKNOWN INDICATION
     Dosage: 60 MG, SINGLE
     Route: 065
  2. ASS [Concomitant]
     Dosage: 100 MG, UNK
  3. PANTOZOL [Concomitant]
  4. CONCOR [Concomitant]
     Dosage: 5 MG, UNK
  5. ERYHEXAL [Concomitant]
     Dosage: 10 MG, UNK
  6. AMLODIPINE [Concomitant]
     Dosage: 5 MG, UNK
  7. TOREM [Concomitant]
     Dosage: 10 MG, UNK
  8. SIMVAHEXAL [Concomitant]
     Dosage: 40 MG, UNK

REACTIONS (4)
  - Ischaemic stroke [Recovering/Resolving]
  - Diplopia [Recovering/Resolving]
  - Dysphagia [Recovering/Resolving]
  - Excessive ocular convergence [Unknown]
